FAERS Safety Report 7485948-6 (Version None)
Quarter: 2011Q2

REPORT INFORMATION
  Report Type: 
  Country: None (occurrence: None)
  Receive Date: 20110517
  Receipt Date: 20110210
  Transmission Date: 20111010
  Serious: Yes (Hospitalization, Other)
  Sender: FDA-Public Use
  Company Number: US-BAYER-2011-013510

PATIENT
  Sex: Male

DRUGS (2)
  1. AVELOX [Suspect]
  2. SIROLIMUS [Concomitant]

REACTIONS (1)
  - INFECTION [None]
